FAERS Safety Report 6810898-5 (Version None)
Quarter: 2010Q2

REPORT INFORMATION
  Report Type: 
  Country: None (occurrence: None)
  Receive Date: 20100630
  Receipt Date: 20080716
  Transmission Date: 20101027
  Serious: No
  Sender: FDA-Public Use
  Company Number: US-PFIZER INC-2008055948

PATIENT
  Sex: Female
  Weight: 63.6 kg

DRUGS (4)
  1. ESTRING [Suspect]
     Indication: ATROPHIC VULVOVAGINITIS
     Route: 067
  2. NEURONTIN [Concomitant]
     Indication: NEUROPATHY PERIPHERAL
  3. PAROXETINE [Concomitant]
  4. VITAMINS [Concomitant]

REACTIONS (4)
  - DEVICE DISLOCATION [None]
  - VAGINAL HAEMORRHAGE [None]
  - VULVOVAGINAL BURNING SENSATION [None]
  - VULVOVAGINAL DISCOMFORT [None]
